FAERS Safety Report 4424204-7 (Version None)
Quarter: 2004Q3

REPORT INFORMATION
  Report Type: 
  Country: None (occurrence: None)
  Receive Date: 20040812
  Receipt Date: 20040809
  Transmission Date: 20050211
  Serious: Yes (Death)
  Sender: FDA-Public Use
  Company Number: 200411818DE

PATIENT
  Age: 80 Year
  Sex: Male
  Weight: 54.5 kg

DRUGS (5)
  1. ENOXAPARIN SODIUM [Suspect]
     Route: 058
  2. CIPROFLOXACIN HCL [Suspect]
     Indication: URINARY TRACT INFECTION
     Dosage: DOSE: 500-0-500
     Route: 048
     Dates: start: 20040129, end: 20040201
  3. AUGMENTIN '125' [Suspect]
     Dosage: DOSE: 1-0-1; DOSE UNIT: UNITS
     Route: 048
     Dates: start: 20040130, end: 20040201
  4. ZYLORIC [Suspect]
     Dosage: DOSE: 0-300-0
  5. THALIDOMID [Concomitant]

REACTIONS (11)
  - ABDOMINAL PAIN LOWER [None]
  - GASTRITIS EROSIVE [None]
  - GENERAL PHYSICAL HEALTH DETERIORATION [None]
  - HAEMOGLOBIN DECREASED [None]
  - HEPATIC FAILURE [None]
  - HEPATIC INFARCTION [None]
  - HYPOGLYCAEMIA [None]
  - PULMONARY OEDEMA [None]
  - SKIN BLEEDING [None]
  - URINARY TRACT INFECTION [None]
  - VOMITING [None]
